FAERS Safety Report 13542968 (Version 1)
Quarter: 2017Q2

REPORT INFORMATION
  Report Type: Spontaneous
  Country: FR (occurrence: FR)
  Receive Date: 20170513
  Receipt Date: 20170513
  Transmission Date: 20170830
  Serious: Yes (Death, Other)
  Sender: FDA-Public Use
  Company Number: FR-ACCORD-051291

PATIENT
  Age: 65 Year
  Sex: Male

DRUGS (17)
  1. GEMCITABINE [Suspect]
     Active Substance: GEMCITABINE\GEMCITABINE HYDROCHLORIDE
     Indication: SQUAMOUS CELL CARCINOMA
     Dosage: 1,250 TWICE?LASTED 30 MINUTES
     Route: 042
     Dates: start: 20170424, end: 20170424
  2. CRESTOR [Concomitant]
     Active Substance: ROSUVASTATIN CALCIUM
  3. SERETIDE [Concomitant]
     Active Substance: FLUTICASONE PROPIONATE\SALMETEROL XINAFOATE
  4. ESIDREX [Concomitant]
     Active Substance: HYDROCHLOROTHIAZIDE
  5. LEXOMIL [Concomitant]
     Active Substance: BROMAZEPAM
  6. SPIRIVA [Concomitant]
     Active Substance: TIOTROPIUM BROMIDE MONOHYDRATE
  7. KARDEGIC [Concomitant]
     Active Substance: ASPIRIN LYSINE
  8. CISPLATIN ACCORD [Suspect]
     Active Substance: CISPLATIN
     Indication: SQUAMOUS CELL CARCINOMA
     Dosage: 80 MG TWICE?FOR 1 HOUR DURATION
     Route: 042
     Dates: start: 20170424, end: 20170424
  9. METFORMIN [Concomitant]
     Active Substance: METFORMIN HYDROCHLORIDE
  10. TOPALGIC LP [Concomitant]
     Active Substance: TRAMADOL
  11. ONDANSETRON [Suspect]
     Active Substance: ONDANSETRON
     Indication: PREMEDICATION
     Route: 042
     Dates: start: 20170424, end: 20170424
  12. METHYLPREDNISOLONE. [Suspect]
     Active Substance: METHYLPREDNISOLONE
     Indication: SQUAMOUS CELL CARCINOMA
     Dosage: SINCE 14-APR-2017 TO 19-APR-2017 AT 100 MG DOSE, RECEIVED METHYLPREDNISOLONE BY ORAL ROUTE
     Route: 042
     Dates: start: 20170420, end: 20170424
  13. APROVEL [Concomitant]
     Active Substance: IRBESARTAN
  14. HUMALOG [Concomitant]
     Active Substance: INSULIN LISPRO
  15. EMEND [Suspect]
     Active Substance: APREPITANT
     Indication: PREMEDICATION
     Route: 048
     Dates: start: 20170424, end: 20170424
  16. LOVENOX [Concomitant]
     Active Substance: ENOXAPARIN SODIUM
  17. NICOPATCH [Concomitant]
     Active Substance: NICOTINE

REACTIONS (3)
  - Epistaxis [Not Recovered/Not Resolved]
  - Haematemesis [Unknown]
  - Cardiac arrest [Fatal]

NARRATIVE: CASE EVENT DATE: 20170424
